FAERS Safety Report 17824464 (Version 1)
Quarter: 2020Q2

REPORT INFORMATION
  Report Type: Spontaneous
  Country: US (occurrence: US)
  Receive Date: 20200523
  Receipt Date: 20200523
  Transmission Date: 20200714
  Serious: Yes (Hospitalization)
  Sender: FDA-Public Use
  Company Number: None

PATIENT
  Weight: 67.1 kg

DRUGS (1)
  1. RITUXIMAB (MOAB C2B8 ANTI CD20, CHIMERIC) (687451) [Suspect]
     Active Substance: RITUXIMAB
     Dates: end: 20191218

REACTIONS (2)
  - Electrocardiogram ST segment elevation [None]
  - Myocardial infarction [None]

NARRATIVE: CASE EVENT DATE: 20191231
